FAERS Safety Report 4657759-8 (Version None)
Quarter: 2005Q2

REPORT INFORMATION
  Report Type: 
  Country: None (occurrence: None)
  Receive Date: 20050510
  Receipt Date: 20050427
  Transmission Date: 20051028
  Serious: Yes (Hospitalization)
  Sender: FDA-Public Use
  Company Number: 200511292JP

PATIENT
  Age: 52 Year
  Sex: Male

DRUGS (12)
  1. ARAVA [Suspect]
     Indication: RHEUMATOID ARTHRITIS
     Route: 048
     Dates: start: 20030929, end: 20040405
  2. PREDNISOLONE [Concomitant]
     Indication: PROPHYLAXIS
  3. LOXONIN [Concomitant]
     Indication: ANALGESIC THERAPY
     Dosage: DOSE: 3 TABLETS A DAY
     Route: 048
  4. RIMATIL [Concomitant]
     Indication: RHEUMATOID ARTHRITIS
     Dosage: DOSE: 1 TABLET A DAY
     Route: 048
  5. ZANTAC [Concomitant]
     Indication: GASTRIC ULCER
     Dosage: DOSE: 1 TABLET A DAY
     Route: 048
  6. METHOTREXATE [Concomitant]
     Indication: RHEUMATOID ARTHRITIS
     Dosage: DOSE: 7.5 MG A WEEK
  7. LENDORM [Concomitant]
     Indication: INSOMNIA
     Dosage: DOSE: 1 TABLET A DAY
     Route: 048
  8. FOLIAMIN [Concomitant]
     Indication: PROPHYLAXIS
     Dosage: DOSE: 1 TABLET A DAY
     Route: 048
  9. RHEUMATREX [Concomitant]
     Dosage: DOSE: 6 MG A WEEK
  10. ACTONEL [Concomitant]
  11. ASPARA-CA [Concomitant]
  12. BENZALIN [Concomitant]

REACTIONS (1)
  - RETINAL DETACHMENT [None]
